FAERS Safety Report 8401652-1 (Version None)
Quarter: 2012Q2

REPORT INFORMATION
  Report Type: 
  Country: None (occurrence: None)
  Receive Date: 20120601
  Receipt Date: 20120523
  Transmission Date: 20120825
  Serious: Yes (Hospitalization, Other)
  Sender: FDA-Public Use
  Company Number: US-SAVIENT-2012S1000049

PATIENT
  Age: 66 Year
  Sex: Male

DRUGS (16)
  1. LASIX [Concomitant]
     Indication: LUNG DISORDER
  2. CLINDAMYCIN [Concomitant]
     Indication: CELLULITIS
  3. COREG [Concomitant]
     Indication: BLOOD PRESSURE ABNORMAL
  4. PREDNISONE TAB [Concomitant]
     Indication: GOUT
  5. KRYSTEXXA [Suspect]
     Route: 042
     Dates: start: 20120228, end: 20120507
  6. ATELVIA [Concomitant]
     Indication: OSTEOPOROSIS
  7. SOLU-MEDROL [Concomitant]
     Indication: PREMEDICATION
     Route: 042
     Dates: start: 20120228, end: 20120521
  8. HYDROCODONE BITARTRATE [Concomitant]
     Indication: PAIN
  9. POTASSIUM CHLORIDE [Concomitant]
     Indication: PRODUCT USED FOR UNKNOWN INDICATION
  10. ANTIBIOTICS [Suspect]
     Indication: CELLULITIS
     Route: 042
     Dates: start: 20120501, end: 20120501
  11. COLCHICINE [Concomitant]
     Indication: GOUT
  12. ANTIHISTAMINES [Concomitant]
     Indication: PREMEDICATION
     Dates: start: 20120227, end: 20120521
  13. ZANAFLEX [Concomitant]
     Indication: PRODUCT USED FOR UNKNOWN INDICATION
  14. KRYSTEXXA [Suspect]
     Indication: GOUT
     Route: 042
     Dates: start: 20120521, end: 20120521
  15. FENTANYL-100 [Concomitant]
     Indication: PAIN
  16. PREDNISONE TAB [Concomitant]
     Indication: INFLAMMATION

REACTIONS (4)
  - THERAPEUTIC RESPONSE DECREASED [None]
  - CELLULITIS STAPHYLOCOCCAL [None]
  - DRUG INTERACTION [None]
  - ANAPHYLACTIC REACTION [None]
